FAERS Safety Report 10611286 (Version 4)
Quarter: 2015Q1

REPORT INFORMATION
  Report Type: Spontaneous
  Country: FI (occurrence: FI)
  Receive Date: 20141126
  Receipt Date: 20150302
  Transmission Date: 20150720
  Serious: Yes (Hospitalization, Other)
  Sender: FDA-Public Use
  Company Number: PHHY2014FI149878

PATIENT
  Age: 66 Year
  Sex: Male

DRUGS (2)
  1. DIOVAN [Suspect]
     Active Substance: VALSARTAN
     Indication: BLOOD PRESSURE INCREASED
     Dosage: 80 MG, QD (DAILY)
     Route: 065
     Dates: start: 2012, end: 201411
  2. AMLODIPIN ORION//AMLODIPINE MALEATE [Suspect]
     Active Substance: AMLODIPINE MALEATE
     Indication: BLOOD PRESSURE INCREASED
     Dosage: UNK
     Route: 065
     Dates: start: 2012, end: 201411

REACTIONS (19)
  - Metastases to lung [Not Recovered/Not Resolved]
  - Diarrhoea [Recovered/Resolved]
  - Gastric disorder [Recovered/Resolved]
  - Muscle spasms [Recovered/Resolved]
  - Electrolyte imbalance [Recovered/Resolved]
  - Inflammation [Recovered/Resolved]
  - Pleurisy [Unknown]
  - Hypotension [Recovered/Resolved]
  - Tendon pain [Unknown]
  - Hypersensitivity [Unknown]
  - Defaecation urgency [Recovered/Resolved]
  - Blood pressure increased [Unknown]
  - Erectile dysfunction [Unknown]
  - Fatigue [Recovered/Resolved]
  - Pulmonary oedema [Recovered/Resolved]
  - Pollakiuria [Recovered/Resolved]
  - Skin discolouration [Unknown]
  - Loss of consciousness [Recovered/Resolved]
  - Dehydration [Recovered/Resolved]

NARRATIVE: CASE EVENT DATE: 201212
